FAERS Safety Report 8915166 (Version 2)
Quarter: 2012Q4

REPORT INFORMATION
  Report Type: 
  Country: GB (occurrence: GB)
  Receive Date: 20121119
  Receipt Date: 20121207
  Transmission Date: 20130627
  Serious: Yes (Disabling)
  Sender: FDA-Public Use
  Company Number: GB-SANOFI-AVENTIS-2012SA077250

PATIENT
  Age: 67 Year
  Sex: Female
  Weight: 79 kg

DRUGS (11)
  1. LANTUS SOLOSTAR [Suspect]
     Indication: DRUG USE FOR UNKNOWN INDICATION
     Dosage: Dose:10 unit(s)
     Route: 058
     Dates: start: 20121011, end: 20121017
  2. SOLOSTAR [Suspect]
     Indication: DEVICE THERAPY
     Dates: start: 20121011, end: 20121017
  3. FOLIC ACID [Concomitant]
  4. OMEPRAZOLE [Concomitant]
     Route: 048
  5. LOSARTAN POTASSIUM [Concomitant]
     Route: 048
  6. BENDROFLUMETHIAZIDE [Concomitant]
     Route: 048
  7. EZETROL [Concomitant]
  8. ASPIRIN [Concomitant]
  9. METHOTREXATE [Concomitant]
  10. INSUMAN BASAL [Concomitant]
     Dosage: Dose:10 unit(s)
     Dates: start: 20120913, end: 20120928
  11. INSUMAN BASAL [Concomitant]
     Dosage: Dose:22 unit(s)
     Dates: start: 20120928, end: 20121004

REACTIONS (9)
  - Gait disturbance [Recovered/Resolved]
  - Vision blurred [Recovered/Resolved]
  - Nausea [Recovered/Resolved]
  - Malaise [Recovered/Resolved]
  - Abdominal pain upper [Recovered/Resolved]
  - Abdominal distension [Recovered/Resolved]
  - Abdominal distension [Recovered/Resolved]
  - Crying [Recovered/Resolved]
  - Confusional state [Recovered/Resolved]
